FAERS Safety Report 7714025-1 (Version None)
Quarter: 2011Q3

REPORT INFORMATION
  Report Type: 
  Country: None (occurrence: None)
  Receive Date: 20110826
  Receipt Date: 20110817
  Transmission Date: 20111222
  Serious: Yes (Hospitalization, Other)
  Sender: FDA-Public Use
  Company Number: US-ASTRAZENECA-2011SE49566

PATIENT
  Age: 59 Year
  Sex: Male

DRUGS (1)
  1. NEXIUM [Suspect]
     Route: 048

REACTIONS (7)
  - GASTRIC PERFORATION [None]
  - ILEOSTOMY [None]
  - RECTAL CANCER [None]
  - PROSTATE CANCER [None]
  - ULCER [None]
  - IMPAIRED GASTRIC EMPTYING [None]
  - COLON CANCER [None]
